FAERS Safety Report 8401546-1 (Version None)
Quarter: 2012Q2

REPORT INFORMATION
  Report Type: 
  Country: None (occurrence: None)
  Receive Date: 20120601
  Receipt Date: 20120521
  Transmission Date: 20120825
  Serious: Yes (Other)
  Sender: FDA-Public Use
  Company Number: GXBR2012US001425

PATIENT
  Sex: Female
  Weight: 73 kg

DRUGS (19)
  1. PROPOFOL [Suspect]
     Indication: ANAESTHESIA
     Dosage: 120 MG, UNK
     Route: 042
     Dates: start: 20120426
  2. LIPITOR [Concomitant]
     Dosage: UNK DF, UNK
  3. CEFAZOLIN [Concomitant]
     Dosage: UNK DF, UNK
     Dates: start: 20120426
  4. FENTANYL-100 [Suspect]
     Indication: ANAESTHESIA
     Dosage: 200 UG, UNK
     Route: 042
     Dates: start: 20120426
  5. MANNITOL [Concomitant]
     Dosage: UNK DF, UNK
     Dates: start: 20120426
  6. MIDAZOLAM [Suspect]
     Indication: ANAESTHESIA
     Dosage: 2 MG, UNK
     Route: 042
     Dates: start: 20120426
  7. HYDROCHLOROTHIAZIDE [Concomitant]
     Dosage: UNK DF, UNK
  8. VITAMIN D [Concomitant]
     Dosage: UNK DF, UNK
  9. ONDANSETRON [Concomitant]
     Dosage: UNK DF, UNK
     Dates: start: 20120426
  10. ROCURONIUM BROMIDE [Suspect]
     Indication: ANAESTHESIA
     Dosage: 50 MG, UNK
     Route: 042
     Dates: start: 20120426
  11. MYCOPHENOLATE MOFETIL [Suspect]
     Dosage: 1000 MG, BID
     Route: 042
     Dates: start: 20120426, end: 20120430
  12. FUROSEMIDE [Concomitant]
     Dosage: UNK DF, UNK
     Dates: start: 20120426
  13. MYCOPHENOLATE MOFETIL [Suspect]
     Indication: RENAL TRANSPLANT
     Dosage: 1000 MG, UNK
     Route: 048
     Dates: start: 20120426, end: 20120426
  14. LISINOPRIL [Concomitant]
     Dosage: UNK DF, UNK
  15. EPHEDRINE [Suspect]
     Indication: ANAESTHESIA
     Dosage: 5 MG, UNK
     Route: 042
     Dates: start: 20120426
  16. SODIUM BICARBONATE [Concomitant]
     Dosage: UNK DF, UNK
  17. DESFLURANE [Suspect]
     Indication: ANAESTHESIA
     Dosage: 1 DF, UNK
     Route: 055
     Dates: start: 20120426
  18. MORPHINE [Suspect]
     Indication: ANAESTHESIA
     Dosage: 10 MG, UNK
     Route: 042
     Dates: start: 20120426
  19. METHYLPREDNISOLONE [Concomitant]
     Dosage: UNK DF, UNK
     Dates: start: 20120426

REACTIONS (1)
  - ENCEPHALOPATHY [None]
